FAERS Safety Report 4855043-0 (Version None)
Quarter: 2005Q4

REPORT INFORMATION
  Report Type: 
  Country: None (occurrence: None)
  Receive Date: 20051215
  Receipt Date: 20051213
  Transmission Date: 20060501
  Serious: Yes (Other)
  Sender: FDA-Public Use
  Company Number: JP-SANOFI-SYNTHELABO-F01200502751

PATIENT
  Sex: Male
  Weight: 40 kg

DRUGS (3)
  1. OXALIPLATIN [Suspect]
     Indication: RECTAL CANCER
     Route: 042
     Dates: start: 20050819, end: 20050819
  2. FLUOROURACIL [Suspect]
     Dosage: 384.6 MG/M2 IV BOLUS AND 576.9 MG/M2 IV 22 HOURS CONTINUOUS INFUSION, Q2W
     Route: 042
     Dates: start: 20050819, end: 20050820
  3. CALCIUM LEVOFOLINATE [Suspect]
     Dosage: 115.4 MG/M2 INFUSED ON DAYS 1+2 EACH CYCLE
     Route: 042
     Dates: start: 20050819, end: 20050820

REACTIONS (1)
  - DEPRESSED LEVEL OF CONSCIOUSNESS [None]
